FAERS Safety Report 7337861-2 (Version None)
Quarter: 2011Q1

REPORT INFORMATION
  Report Type: 
  Country: None (occurrence: None)
  Receive Date: 20110308
  Receipt Date: 20110222
  Transmission Date: 20110831
  Serious: Yes (Death, Hospitalization)
  Sender: FDA-Public Use
  Company Number: DE-JNJFOC-20110107387

PATIENT
  Sex: Male
  Weight: 64 kg

DRUGS (4)
  1. MARCUMAR [Concomitant]
  2. PALEXIA RETARD [Suspect]
     Indication: PAIN
     Dosage: DOSE: 50MG, 2 IN 1 DAY.
     Route: 065
     Dates: start: 20101022, end: 20101123
  3. RAMIPRIL [Concomitant]
  4. AGGRENOX [Concomitant]

REACTIONS (23)
  - RESPIRATORY FAILURE [None]
  - HEMIPARESIS [None]
  - HYPERKALAEMIA [None]
  - CIRCULATORY COLLAPSE [None]
  - PNEUMONIA [None]
  - RENAL FAILURE ACUTE [None]
  - ASTHENIA [None]
  - INTERNATIONAL NORMALISED RATIO INCREASED [None]
  - SEPTIC ENCEPHALOPATHY [None]
  - CEREBROVASCULAR ACCIDENT [None]
  - TACHYPNOEA [None]
  - POLYNEUROPATHY [None]
  - ANAEMIA [None]
  - MUSCLE FATIGUE [None]
  - SEPTIC SHOCK [None]
  - SOMNOLENCE [None]
  - HYPOAESTHESIA [None]
  - OVERDOSE [None]
  - MULTI-ORGAN FAILURE [None]
  - ACUTE HEPATIC FAILURE [None]
  - CEREBRAL INFARCTION [None]
  - FALL [None]
  - QUADRIPLEGIA [None]
